FAERS Safety Report 19330260 (Version 1)
Quarter: 2021Q2

REPORT INFORMATION
  Report Type: Spontaneous
  Country: DE (occurrence: RU)
  Receive Date: 20210528
  Receipt Date: 20210528
  Transmission Date: 20210717
  Serious: Yes (Other)
  Sender: FDA-Public Use
  Company Number: RU-ELI_LILLY_AND_COMPANY-RU202105011491

PATIENT
  Age: 69 Year
  Sex: Male

DRUGS (12)
  1. 5 FLUROURACIL [Concomitant]
     Active Substance: FLUOROURACIL
     Dosage: 750 MG, UNK
     Dates: start: 20191007, end: 20191119
  2. OXALIPLATIN. [Concomitant]
     Active Substance: OXALIPLATIN
     Indication: COLORECTAL CANCER METASTATIC
     Dosage: UNK
     Dates: start: 20191007, end: 20191119
  3. ERBITUX [Suspect]
     Active Substance: CETUXIMAB
     Indication: COLORECTAL CANCER METASTATIC
     Dosage: UNK
     Dates: start: 20191007, end: 20191119
  4. 5 FLUROURACIL [Concomitant]
     Active Substance: FLUOROURACIL
     Dosage: 750 MG, UNK
     Dates: start: 20190418, end: 20190809
  5. ERBITUX [Suspect]
     Active Substance: CETUXIMAB
     Dosage: UNK
     Dates: start: 20190218, end: 20201116
  6. CALCIUM FOLINATE [Concomitant]
     Active Substance: LEUCOVORIN CALCIUM
     Indication: COLORECTAL CANCER METASTATIC
     Dosage: 35 MG, UNK
     Dates: start: 20181225, end: 20181225
  7. CALCIUM FOLINATE [Concomitant]
     Active Substance: LEUCOVORIN CALCIUM
     Dosage: 35 MG, UNK
     Dates: start: 20190418, end: 20190809
  8. CALCIUM FOLINATE [Concomitant]
     Active Substance: LEUCOVORIN CALCIUM
     Dosage: 35 MG, UNK
     Dates: start: 20191007, end: 20191119
  9. CALCIUM FOLINATE [Concomitant]
     Active Substance: LEUCOVORIN CALCIUM
     Dosage: 35 MG, UNK
     Dates: start: 20190218
  10. 5 FLUROURACIL [Concomitant]
     Active Substance: FLUOROURACIL
     Dosage: 750 MG, UNK
     Dates: start: 20190218
  11. 5 FLUROURACIL [Concomitant]
     Active Substance: FLUOROURACIL
     Indication: COLORECTAL CANCER METASTATIC
     Dosage: 750 MG, UNK
     Dates: start: 20181225, end: 20181225
  12. OXALIPLATIN. [Concomitant]
     Active Substance: OXALIPLATIN
     Dosage: UNK
     Dates: start: 20190218, end: 20201116

REACTIONS (4)
  - Disease progression [Unknown]
  - Neutropenia [Recovering/Resolving]
  - Hepatotoxicity [Unknown]
  - Neuropathy peripheral [Unknown]

NARRATIVE: CASE EVENT DATE: 2020
